FAERS Safety Report 6165313-4 (Version None)
Quarter: 2009Q2

REPORT INFORMATION
  Report Type: 
  Country: None (occurrence: None)
  Receive Date: 20090421
  Receipt Date: 20090421
  Transmission Date: 20091009
  Serious: No
  Sender: FDA-Public Use
  Company Number: None

PATIENT
  Sex: Female
  Weight: 79.3795 kg

DRUGS (1)
  1. ESTRATEST [Suspect]

REACTIONS (1)
  - NO ADVERSE EVENT [None]
